FAERS Safety Report 25860687 (Version 3)
Quarter: 2025Q4

REPORT INFORMATION
  Report Type: Report from Study
  Country: EU (occurrence: EU)
  Receive Date: 20250929
  Receipt Date: 20251204
  Transmission Date: 20260117
  Serious: Yes (Other)
  Sender: VERITY PHARMACEUTICALS INC.
  Company Number: EU-VER-202500081

PATIENT
  Sex: Male

DRUGS (2)
  1. TRIPTORELIN [Suspect]
     Active Substance: TRIPTORELIN
     Indication: Gender dysphoria
     Route: 065
  2. TRIPTORELIN [Suspect]
     Active Substance: TRIPTORELIN
     Indication: Off label use
     Route: 065

REACTIONS (24)
  - Off label use [Unknown]
  - Disturbance in attention [Unknown]
  - Dry skin [Unknown]
  - Epistaxis [Unknown]
  - Syncope [Unknown]
  - Fatigue [Unknown]
  - Vitreous floaters [Unknown]
  - Hunger [Unknown]
  - Hyperventilation [Unknown]
  - Flushing [Unknown]
  - Adverse drug reaction [Unknown]
  - Mood swings [Unknown]
  - Nausea [Unknown]
  - Chest pain [Unknown]
  - Arthralgia [Unknown]
  - Scrotal pain [Unknown]
  - Palpitations [Unknown]
  - Pruritus [Unknown]
  - Depressed mood [Unknown]
  - Insomnia [Unknown]
  - Asthenia [Unknown]
  - Abdominal pain upper [Unknown]
  - Defiant behaviour [Unknown]
  - Vertigo [Unknown]
